FAERS Safety Report 7593091-0 (Version None)
Quarter: 2011Q3

REPORT INFORMATION
  Report Type: 
  Country: None (occurrence: None)
  Receive Date: 20110706
  Receipt Date: 20110630
  Transmission Date: 20111222
  Serious: Yes (Hospitalization)
  Sender: FDA-Public Use
  Company Number: DE-ROCHE-786804

PATIENT
  Sex: Female
  Weight: 80 kg

DRUGS (4)
  1. TRASTUZUMAB [Suspect]
     Dosage: MAINTENANCE DOSE. LAST DOSE PRIOR TO SAE BECOMING SERIOUS: 31 MAY 2011.
     Route: 042
     Dates: start: 20100623
  2. L-THYROX [Concomitant]
     Dosage: DRUG REPORTED AS L-THYROX 50
     Dates: start: 19900601
  3. RAMIPRIL [Concomitant]
     Dates: start: 20090301
  4. TRASTUZUMAB [Suspect]
     Dosage: LOADING DOSE (AS PER PROTOCOL). FORM: INFUSION.
     Route: 042
     Dates: start: 20100602, end: 20100602

REACTIONS (1)
  - ELECTROCARDIOGRAM T WAVE INVERSION [None]
